FAERS Safety Report 8200503-8 (Version None)
Quarter: 2012Q1

REPORT INFORMATION
  Report Type: 
  Country: None (occurrence: None)
  Receive Date: 20120309
  Receipt Date: 20120309
  Transmission Date: 20120608
  Serious: Yes (Hospitalization)
  Sender: FDA-Public Use
  Company Number: None

PATIENT
  Age: 58 Year
  Sex: Male

DRUGS (1)
  1. VALPROIC ACID [Suspect]
     Indication: CONVULSION
     Dosage: 250 MG BID PO
     Route: 048
     Dates: start: 20040325, end: 20120301

REACTIONS (5)
  - ALANINE AMINOTRANSFERASE INCREASED [None]
  - ABDOMINAL PAIN LOWER [None]
  - ASPARTATE AMINOTRANSFERASE INCREASED [None]
  - BLOOD BILIRUBIN INCREASED [None]
  - HEPATOTOXICITY [None]
